FAERS Safety Report 20023819 (Version 3)
Quarter: 2025Q1

REPORT INFORMATION
  Report Type: Spontaneous
  Country: US (occurrence: US)
  Receive Date: 20211102
  Receipt Date: 20250211
  Transmission Date: 20250408
  Serious: No
  Sender: PFIZER
  Company Number: US-PFIZER INC-202101417337

PATIENT
  Age: 70 Year
  Sex: Female

DRUGS (1)
  1. XELJANZ XR [Suspect]
     Active Substance: TOFACITINIB CITRATE

REACTIONS (5)
  - Dizziness [Unknown]
  - Eye disorder [Unknown]
  - Sleep disorder [Unknown]
  - Tendonitis [Unknown]
  - COVID-19 [Unknown]

NARRATIVE: CASE EVENT DATE: 20210101
